FAERS Safety Report 6886997-9 (Version None)
Quarter: 2010Q3

REPORT INFORMATION
  Report Type: 
  Country: None (occurrence: None)
  Receive Date: 20100730
  Receipt Date: 20100721
  Transmission Date: 20110219
  Serious: Yes (Other)
  Sender: FDA-Public Use
  Company Number: US-JNJFOC-20100707679

PATIENT
  Sex: Female
  Weight: 63.5 kg

DRUGS (8)
  1. FENTANYL-100 [Suspect]
     Indication: PAIN
     Route: 062
  2. SANDOZ FENTANYL TRANSDERMAL SYSTEM [Suspect]
     Indication: PAIN
     Route: 062
  3. SANDOZ FENTANYL TRANSDERMAL SYSTEM [Suspect]
     Route: 062
  4. FENTANYL-100 [Suspect]
     Indication: PAIN
     Route: 062
  5. OXYCODONE [Concomitant]
     Indication: PAIN
     Dosage: 1-2 EVERY 4-6 HOURS AS NEEDED
     Route: 048
  6. AMBIEN [Concomitant]
     Indication: SLEEP DISORDER
     Route: 048
  7. ZOLOFT [Concomitant]
     Indication: ANXIETY
     Route: 048
  8. ATIVAN [Concomitant]
     Indication: ANXIETY
     Route: 048

REACTIONS (3)
  - FALL [None]
  - INTERVERTEBRAL DISC PROTRUSION [None]
  - LYME DISEASE [None]
